FAERS Safety Report 15984626 (Version 1)
Quarter: 2019Q1

REPORT INFORMATION
  Report Type: Spontaneous
  Country: ES (occurrence: ES)
  Receive Date: 20190220
  Receipt Date: 20190220
  Transmission Date: 20190418
  Serious: Yes (Other)
  Sender: FDA-Public Use
  Company Number: PHHY2019ES039221

PATIENT
  Sex: Male

DRUGS (1)
  1. LAMOTRIGINE SANDOZ [Suspect]
     Active Substance: LAMOTRIGINE
     Indication: PRODUCT USED FOR UNKNOWN INDICATION
     Dosage: UNK
     Route: 048
     Dates: start: 201809

REACTIONS (4)
  - Epilepsy [Unknown]
  - Discomfort [Unknown]
  - Headache [Unknown]
  - Abdominal pain upper [Unknown]
